FAERS Safety Report 7927080-0 (Version None)
Quarter: 2011Q4

REPORT INFORMATION
  Report Type: 
  Country: None (occurrence: None)
  Receive Date: 20111116
  Receipt Date: 20111107
  Transmission Date: 20120403
  Serious: Yes (Hospitalization)
  Sender: FDA-Public Use
  Company Number: 2011MA016331

PATIENT
  Age: 41 Year
  Sex: Male

DRUGS (9)
  1. LORAZEPAM [Suspect]
     Dosage: 1 MG;TID;PO
     Route: 048
     Dates: start: 20110601
  2. AKINETON [Suspect]
     Dosage: 2 MG; PO
     Route: 048
     Dates: start: 20050401
  3. PREV MEDS [Concomitant]
  4. THIORIDAZINE HCL [Suspect]
     Indication: PRODUCT USED FOR UNKNOWN INDICATION
     Dosage: 100 MG; PO
     Route: 048
     Dates: start: 20071101
  5. TAXILAN (PERAZINE) [Suspect]
     Dosage: 100 MG; PO
     Route: 048
     Dates: start: 20100901
  6. RISPERIDONE [Suspect]
     Dosage: 1 MG; PO
     Route: 048
     Dates: start: 20090301
  7. LAMOTRIG-ISIS (NO PREF. NAME) [Suspect]
     Dosage: 100 MG; PO
     Route: 048
     Dates: start: 20100601
  8. CEFUROXIME [Concomitant]
  9. CARBAMAZEPINE [Suspect]
     Dosage: 200 MG; PO
     Route: 048
     Dates: start: 20090301

REACTIONS (3)
  - THROMBOCYTOPENIA [None]
  - ACUTE HEPATIC FAILURE [None]
  - RENAL FAILURE ACUTE [None]
